FAERS Safety Report 7017211-1 (Version None)
Quarter: 2010Q3

REPORT INFORMATION
  Report Type: 
  Country: None (occurrence: None)
  Receive Date: 20100928
  Receipt Date: 20100916
  Transmission Date: 20110219
  Serious: No
  Sender: FDA-Public Use
  Company Number: US-BIOGENIDEC-2010BI032900

PATIENT
  Age: 41 Year
  Sex: Female

DRUGS (3)
  1. TYSABRI [Suspect]
     Indication: MULTIPLE SCLEROSIS
     Route: 042
     Dates: start: 20071218, end: 20080513
  2. TYSABRI [Suspect]
     Route: 042
     Dates: start: 20080708, end: 20090422
  3. TYSABRI [Suspect]
     Route: 042
     Dates: start: 20091030

REACTIONS (1)
  - JC VIRUS TEST [None]
